FAERS Safety Report 15028090 (Version 1)
Quarter: 2018Q2

REPORT INFORMATION
  Report Type: Spontaneous
  Country: US (occurrence: US)
  Receive Date: 20180526
  Receipt Date: 20180526
  Transmission Date: 20180711
  Serious: No
  Sender: FDA-Public Use
  Company Number: None

PATIENT
  Age: 56 Year
  Sex: Female

DRUGS (1)
  1. GLEEVEC [Suspect]
     Active Substance: IMATINIB MESYLATE
     Indication: LUNG NEOPLASM MALIGNANT

REACTIONS (2)
  - Condition aggravated [None]
  - Lung neoplasm malignant [None]

NARRATIVE: CASE EVENT DATE: 20180507
